FAERS Safety Report 7155844-2 (Version None)
Quarter: 2010Q4

REPORT INFORMATION
  Report Type: 
  Country: None (occurrence: None)
  Receive Date: 20101123
  Receipt Date: 20100804
  Transmission Date: 20110411
  Serious: No
  Sender: FDA-Public Use
  Company Number: 010975

PATIENT
  Sex: Male

DRUGS (1)
  1. CIMZIA [Suspect]
     Indication: CROHN'S DISEASE
     Dosage: SUBCUTANEOUS, 400 MG 1X/2 WEEKS
     Route: 058
     Dates: start: 20080910

REACTIONS (7)
  - ABDOMINAL PAIN [None]
  - DECREASED ACTIVITY [None]
  - DECREASED APPETITE [None]
  - DEPRESSION [None]
  - FATIGUE [None]
  - NASOPHARYNGITIS [None]
  - WEIGHT GAIN POOR [None]
